FAERS Safety Report 16491199 (Version 1)
Quarter: 2019Q2

REPORT INFORMATION
  Report Type: Report from Study
  Country: ES (occurrence: ES)
  Receive Date: 20190628
  Receipt Date: 20190628
  Transmission Date: 20190711
  Serious: Yes (Life-Threatening, Hospitalization)
  Sender: FDA-Public Use
  Company Number: ES-TEVA-2019-ES-1070326

PATIENT
  Age: 82 Year
  Sex: Male

DRUGS (6)
  1. OPTOVITE B12 1.000 MICROGRAMOS SOLUCI?N INYECTABLE , 5 AMPOLLAS DE 2 M [Concomitant]
     Active Substance: CYANOCOBALAMIN
     Indication: ANAEMIA
     Route: 030
     Dates: start: 201710
  2. CLOPIDOGREL [Suspect]
     Active Substance: CLOPIDOGREL BISULFATE
     Indication: PROPHYLAXIS
     Route: 048
     Dates: start: 201708, end: 20181210
  3. SIMVASTATINA (1023A) [Concomitant]
     Active Substance: SIMVASTATIN
     Indication: DYSLIPIDAEMIA
     Route: 048
     Dates: start: 201511
  4. NOVOMIX 30 FLEXPEN 100 U/ML, SUSPENSION INYECTABLE EN UNA PLUMA PRECAR [Concomitant]
     Indication: DIABETES MELLITUS
     Route: 058
     Dates: start: 2017
  5. CORIPREN 20 MG/10 MG COMPRIMIDOS RECUBIERTOS CON PELICULA , 28 COMPRIM [Concomitant]
     Indication: HYPERTENSION
     Route: 048
     Dates: start: 201007
  6. METFORMINA (1359A) [Concomitant]
     Active Substance: METFORMIN HYDROCHLORIDE
     Indication: DIABETES MELLITUS
     Route: 048

REACTIONS (1)
  - Subdural haemorrhage [Recovered/Resolved]

NARRATIVE: CASE EVENT DATE: 201812
